FAERS Safety Report 8777254 (Version 1)
Quarter: 2012Q4

REPORT INFORMATION
  Report Type: 
  Country: US (occurrence: US)
  Receive Date: 20120910
  Receipt Date: 20120910
  Transmission Date: 20130627
  Serious: No
  Sender: FDA-Public Use
  Company Number: US-ASTRAZENECA-2012SE41538

PATIENT
  Age: 72 Year
  Sex: Female
  Weight: 62.1 kg

DRUGS (13)
  1. SYMBICORT PMDI [Suspect]
     Dosage: 160/4.5 MCG, 2 PUFFS, BID
     Route: 055
  2. NEXIUM [Suspect]
     Route: 048
  3. SEROQUEL [Suspect]
     Indication: ILL-DEFINED DISORDER
     Route: 048
     Dates: start: 2006
  4. SEROQUEL [Suspect]
     Indication: SLEEP DISORDER
     Route: 048
     Dates: start: 2006
  5. SEROQUEL [Suspect]
     Indication: ILL-DEFINED DISORDER
     Route: 048
  6. SEROQUEL [Suspect]
     Indication: SLEEP DISORDER
     Route: 048
  7. XANAX [Concomitant]
     Indication: ANXIETY
  8. VITAMIN D [Concomitant]
  9. B COMPLEX [Concomitant]
  10. ALBUTEROL [Concomitant]
  11. CALCIUM [Concomitant]
  12. IPRATROPIUM BROMIDE [Concomitant]
  13. XOPENEX HFA [Concomitant]

REACTIONS (10)
  - Dyspnoea [Unknown]
  - Sleep apnoea syndrome [Unknown]
  - Confusional state [Unknown]
  - Respiratory disorder [Unknown]
  - Fatigue [Unknown]
  - Malaise [Unknown]
  - Insomnia [Unknown]
  - Off label use [Unknown]
  - Off label use [Unknown]
  - Drug dose omission [Unknown]
